FAERS Safety Report 9658993 (Version 1)
Quarter: 2013Q4

REPORT INFORMATION
  Report Type: Report from Study
  Country: ZA (occurrence: ZA)
  Receive Date: 20131031
  Receipt Date: 20131031
  Transmission Date: 20140711
  Serious: Yes (Hospitalization)
  Sender: FDA-Public Use
  Company Number: ZA-ROCHE-1297124

PATIENT
  Age: 67 Year
  Sex: Male

DRUGS (2)
  1. MIRCERA [Suspect]
     Indication: NEPHROGENIC ANAEMIA
     Route: 058
     Dates: start: 201111
  2. MIRCERA [Suspect]
     Route: 058
     Dates: start: 201202

REACTIONS (2)
  - Pneumonia [Unknown]
  - Cardiac failure [Unknown]
